FAERS Safety Report 9372042 (Version 1)
Quarter: 2013Q2

REPORT INFORMATION
  Report Type: Spontaneous
  Country: AU (occurrence: AU)
  Receive Date: 20130627
  Receipt Date: 20130627
  Transmission Date: 20140414
  Serious: Yes (Death)
  Sender: FDA-Public Use
  Company Number: AU-ASTRAZENECA-2013SE48785

PATIENT
  Sex: Female

DRUGS (19)
  1. NEXIUM [Suspect]
     Route: 048
  2. METOPROLOL [Suspect]
     Route: 048
  3. FLUCONAZOLE [Suspect]
     Route: 048
  4. PANAMAX [Suspect]
     Route: 065
  5. RAMIPRIL [Suspect]
     Route: 048
  6. ATROVENT [Suspect]
     Route: 065
  7. FAMVIR [Suspect]
     Route: 065
  8. FUNGILIN [Suspect]
     Route: 065
  9. KENALOG [Suspect]
     Route: 065
  10. MAXOLON [Suspect]
     Route: 065
  11. NIZATIDINE [Suspect]
     Route: 065
  12. PANADEINE FORTE [Suspect]
     Route: 065
  13. PARIET [Suspect]
     Route: 065
  14. PRADAXA [Suspect]
     Indication: CARDIOVASCULAR EVENT PROPHYLAXIS
     Route: 065
     Dates: start: 20110804
  15. SERETIDE ACCUHALER [Suspect]
     Route: 065
  16. SPIRIVA [Suspect]
     Route: 065
  17. SPIRONOLACTONE [Suspect]
     Route: 065
  18. TEMAZEPAM [Suspect]
     Route: 065
  19. VENTOLIN [Suspect]
     Route: 065

REACTIONS (1)
  - Pancreatic carcinoma [Fatal]
